FAERS Safety Report 23905952 (Version 1)
Quarter: 2024Q2

REPORT INFORMATION
  Report Type: Spontaneous
  Country: JP (occurrence: JP)
  Receive Date: 20240527
  Receipt Date: 20240527
  Transmission Date: 20240716
  Serious: Yes (Death, Other)
  Sender: FDA-Public Use
  Company Number: JP-002147023-NVSJ2024JP006220

PATIENT
  Age: 74 Year
  Sex: Female

DRUGS (2)
  1. NEORAL [Suspect]
     Active Substance: CYCLOSPORINE
     Indication: Nephrotic syndrome
     Dosage: HIGH DOSE, UNK
     Route: 048
  2. RINDERON [Concomitant]
     Indication: Product used for unknown indication
     Dosage: UNK
     Route: 065

REACTIONS (6)
  - Cerebral haemorrhage [Fatal]
  - Lymphocyte count decreased [Unknown]
  - Pneumonia fungal [Unknown]
  - Nutritional condition abnormal [Unknown]
  - Decreased immune responsiveness [Unknown]
  - Immunosuppressant drug level increased [Unknown]
